FAERS Safety Report 10916118 (Version 1)
Quarter: 2015Q1

REPORT INFORMATION
  Report Type: Report from Study
  Country: BR (occurrence: BR)
  Receive Date: 20150316
  Receipt Date: 20150316
  Transmission Date: 20150721
  Serious: Yes (Death, Hospitalization)
  Sender: FDA-Public Use
  Company Number: BR-ABBVIE-15K-020-1360502-00

PATIENT
  Sex: Female
  Weight: 58 kg

DRUGS (1)
  1. HUMIRA [Suspect]
     Active Substance: ADALIMUMAB
     Indication: PSORIATIC ARTHROPATHY
     Route: 058
     Dates: end: 201411

REACTIONS (3)
  - Renal failure [Fatal]
  - Feeling abnormal [Unknown]
  - Renal disorder [Unknown]
